FAERS Safety Report 5023436-7 (Version None)
Quarter: 2006Q2

REPORT INFORMATION
  Report Type: 
  Country: None (occurrence: None)
  Receive Date: 20060427
  Receipt Date: 20051122
  Transmission Date: 20061013
  Serious: Yes (Other)
  Sender: FDA-Public Use
  Company Number: 2005-135094-NL

PATIENT
  Sex: Female

DRUGS (2)
  1. ZEMURON [Suspect]
     Indication: ANAESTHESIA
     Dosage: DF INTRAVENOUS (NOS)
     Route: 042
     Dates: start: 20051101, end: 20051101
  2. FENTANYL [Concomitant]

REACTIONS (1)
  - NEUROMUSCULAR BLOCK PROLONGED [None]
